FAERS Safety Report 7583132-9 (Version None)
Quarter: 2011Q2

REPORT INFORMATION
  Report Type: 
  Country: None (occurrence: None)
  Receive Date: 20110630
  Receipt Date: 20100715
  Transmission Date: 20111010
  Serious: No
  Sender: FDA-Public Use
  Company Number: US-ASTRAZENECA-2010SE33058

PATIENT
  Age: 71 Year
  Sex: Male

DRUGS (1)
  1. ZOLADEX [Suspect]
     Route: 058
     Dates: start: 20091030

REACTIONS (3)
  - BLOOD TESTOSTERONE DECREASED [None]
  - WRONG DRUG ADMINISTERED [None]
  - HOT FLUSH [None]
